FAERS Safety Report 20981089 (Version 5)
Quarter: 2023Q1

REPORT INFORMATION
  Report Type: Spontaneous
  Country: US (occurrence: US)
  Receive Date: 20220620
  Receipt Date: 20230112
  Transmission Date: 20230417
  Serious: Yes (Other)
  Sender: FDA-Public Use
  Company Number: US-PFIZER INC-PV202200003466

PATIENT
  Age: 62 Year
  Sex: Female

DRUGS (3)
  1. XELJANZ XR [Suspect]
     Active Substance: TOFACITINIB CITRATE
     Indication: Rheumatoid arthritis
     Dosage: 11 MG, DAILY
     Route: 048
     Dates: start: 201306, end: 20220305
  2. XELJANZ XR [Suspect]
     Active Substance: TOFACITINIB CITRATE
     Dosage: 11 MG, 1X/DAY
     Route: 048
     Dates: start: 202204
  3. HYDROXYCHLOROQUINE [Concomitant]
     Active Substance: HYDROXYCHLOROQUINE
     Dosage: UNK

REACTIONS (12)
  - Rheumatoid arthritis [Unknown]
  - Drug dependence [Unknown]
  - Therapeutic product effect delayed [Unknown]
  - Loss of personal independence in daily activities [Recovering/Resolving]
  - Arthralgia [Recovering/Resolving]
  - Joint swelling [Recovering/Resolving]
  - Blood cholesterol increased [Unknown]
  - Nodule [Unknown]
  - Malaise [Recovering/Resolving]
  - Pain [Recovering/Resolving]
  - Depressed mood [Recovering/Resolving]
  - Discouragement [Recovering/Resolving]

NARRATIVE: CASE EVENT DATE: 20220101
